FAERS Safety Report 12013018 (Version 4)
Quarter: 2016Q3

REPORT INFORMATION
  Report Type: Spontaneous
  Country: FR (occurrence: FR)
  Receive Date: 20160205
  Receipt Date: 20160713
  Transmission Date: 20161109
  Serious: Yes (Life-Threatening, Hospitalization, Other)
  Sender: FDA-Public Use
  Company Number: FR-ASTRAZENECA-2016SE12367

PATIENT
  Age: 343 Month
  Sex: Female
  Weight: 85.5 kg

DRUGS (17)
  1. NALTREXONE [Concomitant]
     Active Substance: NALTREXONE
     Dosage: 40.0DF ONCE/SINGLE ADMINISTRATION
     Route: 048
     Dates: start: 20160117, end: 20160117
  2. ZYRTEC [Suspect]
     Active Substance: CETIRIZINE HYDROCHLORIDE
     Dosage: 15.0DF ONCE/SINGLE ADMINISTRATION
     Route: 048
     Dates: start: 20160117, end: 20160117
  3. XEROQUEL [Suspect]
     Active Substance: QUETIAPINE FUMARATE
     Dosage: 40.0DF ONCE/SINGLE ADMINISTRATION
     Route: 048
     Dates: start: 20160117, end: 20160117
  4. DAFLON [Concomitant]
     Active Substance: DIOSMIN\HESPERIDIN
     Dosage: 80.0DF ONCE/SINGLE ADMINISTRATION
     Route: 048
     Dates: start: 20160117, end: 20160117
  5. SULFARLEM [Concomitant]
     Active Substance: ANETHOLTRITHION
     Dosage: 150.0DF ONCE/SINGLE ADMINISTRATION
     Route: 048
     Dates: start: 20160117, end: 20160117
  6. ASPIRINE [Suspect]
     Active Substance: ASPIRIN
     Dosage: 14.0G ONCE/SINGLE ADMINISTRATION
     Route: 048
     Dates: start: 20160117, end: 20160117
  7. THERALENE [Suspect]
     Active Substance: TRIMEPRAZINE
     Dosage: 43.0DF ONCE/SINGLE ADMINISTRATION
     Route: 048
     Dates: start: 20160117, end: 20160117
  8. VERATRAN [Suspect]
     Active Substance: CLOTIAZEPAM
     Dosage: 18.0DF ONCE/SINGLE ADMINISTRATION
     Route: 048
     Dates: start: 20160117, end: 20160117
  9. KETUM [Concomitant]
     Active Substance: KETOPROFEN
     Dosage: 17.0DF ONCE/SINGLE ADMINISTRATION
     Route: 048
     Dates: start: 20160117, end: 20160117
  10. DOLIPRANE [Concomitant]
     Active Substance: ACETAMINOPHEN
     Dosage: 8.0DF ONCE/SINGLE ADMINISTRATION
     Route: 048
     Dates: start: 20160117, end: 20160117
  11. ALPRAZOLAM. [Suspect]
     Active Substance: ALPRAZOLAM
     Dosage: 70.0DF ONCE/SINGLE ADMINISTRATION
     Route: 048
     Dates: start: 20160117, end: 20160117
  12. VENLAFAXINE [Suspect]
     Active Substance: VENLAFAXINE HYDROCHLORIDE
     Dosage: 88.0DF ONCE/SINGLE ADMINISTRATION
     Route: 048
     Dates: start: 20160117, end: 20160117
  13. ATARAX [Suspect]
     Active Substance: HYDROXYZINE\HYDROXYZINE HYDROCHLORIDE
     Dosage: 32.0DF ONCE/SINGLE ADMINISTRATION
     Route: 048
     Dates: start: 20160117, end: 20160117
  14. PYOSTACINE [Concomitant]
     Active Substance: PRISTINAMYCIN
     Dosage: 16.0DF ONCE/SINGLE ADMINISTRATION
     Route: 048
     Dates: start: 20160117, end: 20160117
  15. SPASFON [Concomitant]
     Active Substance: PHLOROGLUCINOL
     Dosage: 20.0DF ONCE/SINGLE ADMINISTRATION
     Route: 048
     Dates: start: 20160117, end: 20160117
  16. OMEPRAZOLE. [Suspect]
     Active Substance: OMEPRAZOLE
     Dosage: 100.0MG ONCE/SINGLE ADMINISTRATION
     Route: 048
     Dates: start: 20160117, end: 20160117
  17. BACLOFENE [Suspect]
     Active Substance: BACLOFEN
     Dosage: 96.0DF ONCE/SINGLE ADMINISTRATION
     Route: 048
     Dates: start: 20160117, end: 20160117

REACTIONS (12)
  - Status epilepticus [Recovered/Resolved]
  - Electrocardiogram QT prolonged [Recovered/Resolved]
  - Coma [Recovered/Resolved]
  - Haemodynamic instability [Unknown]
  - Electrocardiogram repolarisation abnormality [Unknown]
  - Poisoning deliberate [Recovered/Resolved]
  - Alcohol withdrawal syndrome [Recovered/Resolved]
  - Hepatocellular injury [Recovered/Resolved]
  - Hypothermia [Unknown]
  - Toxicity to various agents [Recovered/Resolved]
  - Intentional overdose [Unknown]
  - Drug withdrawal convulsions [Recovered/Resolved]

NARRATIVE: CASE EVENT DATE: 201601
